FAERS Safety Report 16913635 (Version 2)
Quarter: 2019Q4

REPORT INFORMATION
  Report Type: Spontaneous
  Country: BR (occurrence: BR)
  Receive Date: 20191014
  Receipt Date: 20191028
  Transmission Date: 20200122
  Serious: Yes (Hospitalization, Other)
  Sender: FDA-Public Use
  Company Number: BR-PFIZER INC-2017544124

PATIENT
  Age: 3 Month
  Sex: Male

DRUGS (2)
  1. GENOTROPIN [Suspect]
     Active Substance: SOMATROPIN
     Indication: PRADER-WILLI SYNDROME
     Dosage: UNK (REPORTED AS 0.5)
     Dates: start: 201801
  2. GENOTROPIN [Suspect]
     Active Substance: SOMATROPIN
     Dosage: UNK (REPORTED AS 0.5)

REACTIONS (2)
  - Screaming [Not Recovered/Not Resolved]
  - Kawasaki^s disease [Recovered/Resolved]

NARRATIVE: CASE EVENT DATE: 201801
